FAERS Safety Report 21933458 (Version 1)
Quarter: 2023Q1

REPORT INFORMATION
  Report Type: Spontaneous
  Country: US (occurrence: None)
  Receive Date: 20230201
  Receipt Date: 20230201
  Transmission Date: 20230418
  Serious: No
  Sender: FDA-Public Use
  Company Number: 2023A022609

PATIENT
  Age: 342 Month
  Sex: Male
  Weight: 141.5 kg

DRUGS (2)
  1. SEROQUEL [Suspect]
     Active Substance: QUETIAPINE FUMARATE
     Indication: Bipolar disorder
     Route: 048
     Dates: start: 202202
  2. SEROQUEL XR [Suspect]
     Active Substance: QUETIAPINE FUMARATE
     Indication: Bipolar disorder
     Route: 048
     Dates: start: 202210

REACTIONS (17)
  - Enuresis [Unknown]
  - Bladder dysfunction [Unknown]
  - Weight increased [Unknown]
  - Irritability [Unknown]
  - Dry mouth [Unknown]
  - Headache [Unknown]
  - Crying [Unknown]
  - Fatigue [Unknown]
  - Synovial cyst [Unknown]
  - Condition aggravated [Unknown]
  - Agitation [Unknown]
  - Withdrawal syndrome [Unknown]
  - Nasopharyngitis [Unknown]
  - Constipation [Unknown]
  - Influenza [Unknown]
  - Rhinorrhoea [Unknown]
  - Blood cholesterol increased [Unknown]

NARRATIVE: CASE EVENT DATE: 20220201
